FAERS Safety Report 16904642 (Version 1)
Quarter: 2019Q4

REPORT INFORMATION
  Report Type: Spontaneous
  Country: US (occurrence: US)
  Receive Date: 20190819
  Receipt Date: 20190819
  Transmission Date: 20200122
  Serious: Yes (Other)
  Sender: FDA-Public Use
  Company Number: None

PATIENT
  Sex: Female

DRUGS (1)
  1. MEROPENEM 1 GM NOVAPLUS/FRESENIUS KABI [Suspect]
     Active Substance: MEROPENEM
     Indication: CYSTIC FIBROSIS
     Route: 042
     Dates: start: 20190806, end: 20190806

REACTIONS (2)
  - Paraesthesia [None]
  - Infusion related reaction [None]
